FAERS Safety Report 9054925 (Version 1)
Quarter: 2013Q1

REPORT INFORMATION
  Report Type: Spontaneous
  Country: DK (occurrence: DK)
  Receive Date: 20130208
  Receipt Date: 20130208
  Transmission Date: 20140127
  Serious: Yes (Hospitalization, Other)
  Sender: FDA-Public Use
  Company Number: DK-JNJFOC-20130116041

PATIENT
  Age: 60 None
  Sex: Female

DRUGS (2)
  1. RISPERIDAL [Suspect]
     Indication: SCHIZOPHRENIA, PARANOID TYPE
     Route: 065
  2. ZYPREXA [Suspect]
     Indication: SCHIZOPHRENIA, PARANOID TYPE
     Route: 065

REACTIONS (4)
  - Blindness [Unknown]
  - Diplopia [Unknown]
  - Hospitalisation [Unknown]
  - Ear disorder [Unknown]
